FAERS Safety Report 11570117 (Version 9)
Quarter: 2016Q1

REPORT INFORMATION
  Report Type: Spontaneous
  Country: US (occurrence: US)
  Receive Date: 20150929
  Receipt Date: 20160229
  Transmission Date: 20160525
  Serious: Yes (Hospitalization, Other)
  Sender: FDA-Public Use
  Company Number: US-PFIZER INC-2015322653

PATIENT
  Age: 77 Year
  Sex: Male
  Weight: 88 kg

DRUGS (16)
  1. AMARYL [Concomitant]
     Active Substance: GLIMEPIRIDE
     Dosage: UNK
  2. BABY ASPIRIN [Concomitant]
     Active Substance: ASPIRIN
     Dosage: UNK
     Dates: end: 20151020
  3. COUMADINE [Concomitant]
     Active Substance: WARFARIN SODIUM
     Dosage: UNK
     Dates: end: 20151020
  4. METOPROLOL. [Concomitant]
     Active Substance: METOPROLOL
     Dosage: UNK
  5. VYTORIN [Concomitant]
     Active Substance: EZETIMIBE\SIMVASTATIN
     Dosage: UNK
  6. LEVOTHYROXINE. [Concomitant]
     Active Substance: LEVOTHYROXINE
     Dosage: UNK
  7. PRILOSEC [Concomitant]
     Active Substance: OMEPRAZOLE MAGNESIUM
     Dosage: UNK
  8. EPITOL [Concomitant]
     Active Substance: CARBAMAZEPINE
     Dosage: UNK
  9. SUTENT [Suspect]
     Active Substance: SUNITINIB MALATE
     Dosage: 25 MG, UNK (3 WEEKS ON AND UNKNOWN BREAK PERIOD)
     Dates: start: 20151204, end: 20151231
  10. ALLOPURINOL. [Concomitant]
     Active Substance: ALLOPURINOL
     Dosage: UNK
  11. SUTENT [Suspect]
     Active Substance: SUNITINIB MALATE
     Dosage: 50 MG, ALTERNATE DAY
     Dates: start: 20151020, end: 20151101
  12. SUTENT [Suspect]
     Active Substance: SUNITINIB MALATE
     Dosage: 25 MG, CYCLIC (28 DAYS ON/14 DAYS OFF)
     Dates: start: 20160118
  13. FERROUS SULFATE [Concomitant]
     Active Substance: FERROUS SULFATE\FERROUS SULFATE, DRIED
     Dosage: UNK
  14. RAMIPRIL. [Concomitant]
     Active Substance: RAMIPRIL
     Dosage: UNK
  15. LASIX [Concomitant]
     Active Substance: FUROSEMIDE
     Dosage: UNK
  16. SUTENT [Suspect]
     Active Substance: SUNITINIB MALATE
     Indication: RENAL CELL CARCINOMA STAGE IV
     Dosage: 50 MG DAILY, CYCLIC (28 DAYS ON/14 DAYS OFF)
     Dates: start: 20150919, end: 20151101

REACTIONS (10)
  - Blood count abnormal [Unknown]
  - Dyspnoea [Unknown]
  - Anaemia [Unknown]
  - Constipation [Unknown]
  - Diverticulitis [Unknown]
  - Haemorrhage [Unknown]
  - Haematochezia [Unknown]
  - Blood disorder [Unknown]
  - Gastrointestinal haemorrhage [Recovered/Resolved]
  - Abdominal pain [Unknown]
